FAERS Safety Report 21038377 (Version 1)
Quarter: 2022Q3

REPORT INFORMATION
  Report Type: Spontaneous
  Country: CN (occurrence: CN)
  Receive Date: 20220704
  Receipt Date: 20220704
  Transmission Date: 20221026
  Serious: Yes (Hospitalization)
  Sender: FDA-Public Use
  Company Number: None

PATIENT
  Age: 11 Year
  Sex: Male
  Weight: 35.4 kg

DRUGS (4)
  1. CYCLOPHOSPHAMIDE [Suspect]
     Active Substance: CYCLOPHOSPHAMIDE
     Indication: IgA nephropathy
     Dosage: 0.4 G, QD (4:1 GLUCOSE AND SODIUM CHLORIDE 500ML + CYCLOPHOSPHAMIDE POWDER INJECTION 0.4G)
     Route: 041
     Dates: start: 20220615, end: 20220616
  2. CYCLOPHOSPHAMIDE [Suspect]
     Active Substance: CYCLOPHOSPHAMIDE
     Dosage: QD (DOSE RE-INTRODUCED: GLUCOSE AND SODIUM CHLORIDE + CYCLOPHOSPHAMIDE POWDER INJECTION)
     Route: 041
  3. DEXTROSE\SODIUM CHLORIDE [Suspect]
     Active Substance: DEXTROSE\SODIUM CHLORIDE
     Indication: Medication dilution
     Dosage: 500 ML, QD (4:1 GLUCOSE AND SODIUM CHLORIDE 500ML + CYCLOPHOSPHAMIDE POWDER INJECTION 0.4G)
     Route: 041
     Dates: start: 20220615, end: 20220616
  4. DEXTROSE\SODIUM CHLORIDE [Suspect]
     Active Substance: DEXTROSE\SODIUM CHLORIDE
     Dosage: QD (DOSE RE-INTRODUCED: GLUCOSE AND SODIUM CHLORIDE + CYCLOPHOSPHAMIDE POWDER INJECTION)
     Route: 041

REACTIONS (2)
  - Vomiting [Recovering/Resolving]
  - Abdominal discomfort [Recovering/Resolving]

NARRATIVE: CASE EVENT DATE: 20220615
